FAERS Safety Report 26099114 (Version 1)
Quarter: 2025Q4

REPORT INFORMATION
  Report Type: Report from Study
  Country: AE (occurrence: AE)
  Receive Date: 20251128
  Receipt Date: 20251128
  Transmission Date: 20260117
  Serious: Yes (Other)
  Sender: ROCHE
  Company Number: AE-ROCHE-10000442536

PATIENT
  Age: 44 Year
  Sex: Female

DRUGS (1)
  1. PHESGO [Suspect]
     Active Substance: HYALURONIDASE-ZZXF\PERTUZUMAB\TRASTUZUMAB
     Indication: Product used for unknown indication
     Route: 065

REACTIONS (12)
  - Headache [Unknown]
  - Metastases to central nervous system [Unknown]
  - Vomiting [Unknown]
  - Gastritis [Unknown]
  - Adverse drug reaction [Unknown]
  - Constipation [Unknown]
  - Diarrhoea [Unknown]
  - Insomnia [Unknown]
  - Hypersensitivity [Unknown]
  - Diabetes mellitus [Unknown]
  - Dermatitis [Unknown]
  - Diabetic dermopathy [Unknown]
